FAERS Safety Report 16959106 (Version 2)
Quarter: 2025Q3

REPORT INFORMATION
  Report Type: Spontaneous
  Country: EU (occurrence: EU)
  Receive Date: 20191024
  Receipt Date: 20250709
  Transmission Date: 20251021
  Serious: Yes (Other)
  Sender: AUROBINDO
  Company Number: EU-AUROBINDO-AUR-APL-2019-068592

PATIENT
  Age: 72 Year
  Sex: Female

DRUGS (8)
  1. IBUPROFEN [Suspect]
     Active Substance: IBUPROFEN
     Indication: Myalgia
     Route: 065
  2. IBUPROFEN [Suspect]
     Active Substance: IBUPROFEN
     Indication: Back pain
  3. IBUPROFEN [Suspect]
     Active Substance: IBUPROFEN
     Indication: Pyrexia
  4. LEVOFLOXACIN [Suspect]
     Active Substance: LEVOFLOXACIN
     Indication: Sepsis
     Dosage: 750 MILLIGRAM, ONCE A DAY
     Route: 048
  5. LEVOFLOXACIN [Suspect]
     Active Substance: LEVOFLOXACIN
     Indication: Pyelonephritis
     Route: 065
  6. ACETAMINOPHEN [Suspect]
     Active Substance: ACETAMINOPHEN
     Indication: Pyrexia
     Route: 065
  7. LEVOTHYROXINE [Concomitant]
     Active Substance: LEVOTHYROXINE
     Indication: Thyroid therapy
     Route: 065
  8. ERTAPENEM [Suspect]
     Active Substance: ERTAPENEM
     Indication: Product used for unknown indication
     Dosage: 1 GRAM, ONCE A DAY
     Route: 065

REACTIONS (11)
  - Condition aggravated [Unknown]
  - C-reactive protein increased [Unknown]
  - Neurological decompensation [Unknown]
  - Sepsis [Recovered/Resolved]
  - Bacterial toxaemia [Recovered/Resolved]
  - Pyrexia [Recovered/Resolved]
  - Inflammatory marker increased [Unknown]
  - Bacterial translocation [Unknown]
  - Mental status changes [Unknown]
  - Product administration error [Unknown]
  - Drug ineffective [Unknown]
